FAERS Safety Report 14553507 (Version 1)
Quarter: 2018Q1

REPORT INFORMATION
  Report Type: Report from Study
  Country: US (occurrence: US)
  Receive Date: 20180220
  Receipt Date: 20180220
  Transmission Date: 20180509
  Serious: Yes (Other)
  Sender: FDA-Public Use
  Company Number: US-UCBSA-2018004875

PATIENT
  Age: 25 Year
  Sex: Female
  Weight: 68 kg

DRUGS (5)
  1. ASPERCREME NOS [Concomitant]
     Active Substance: MENTHOL\TROLAMINE SALICYLATE
     Indication: UNEVALUABLE EVENT
     Dosage: UNK, 2X/DAY (BID)
     Dates: start: 20180120, end: 20180124
  2. PRENATAL VITAMINS [Concomitant]
     Active Substance: VITAMINS
     Indication: PRODUCT USED FOR UNKNOWN INDICATION
     Dosage: 1 DF, ONCE DAILY (QD)
     Route: 048
     Dates: start: 20171215, end: 20180124
  3. FOLIC ACID. [Concomitant]
     Active Substance: FOLIC ACID
     Indication: CROHN^S DISEASE
     Dosage: 800 ?G, 2X/DAY (BID)
     Route: 048
     Dates: start: 20171215, end: 20180124
  4. CERTOLIZUMAB PEGOL RA [Suspect]
     Active Substance: CERTOLIZUMAB PEGOL
     Indication: CROHN^S DISEASE
     Dosage: 400 MG, MONTHLY (QM)
     Dates: start: 20170409, end: 20180124
  5. IRON [Concomitant]
     Active Substance: IRON
     Indication: ANAEMIA
     Dosage: 55 MG, 2X/DAY (BID)
     Route: 048
     Dates: start: 20171215, end: 20180124

REACTIONS (4)
  - Abortion spontaneous [Unknown]
  - Skin fissures [Recovering/Resolving]
  - Pregnancy [Unknown]
  - Rash [Recovering/Resolving]

NARRATIVE: CASE EVENT DATE: 2017
